FAERS Safety Report 14165815 (Version 2)
Quarter: 2019Q3

REPORT INFORMATION
  Report Type: Report from Study
  Country: AU (occurrence: AU)
  Receive Date: 20171107
  Receipt Date: 20190822
  Transmission Date: 20191004
  Serious: Yes (Other)
  Sender: FDA-Public Use
  Company Number: AU-TEVA-823687ROM

PATIENT
  Age: 38 Year
  Sex: Female

DRUGS (1)
  1. ACITRETIN. [Suspect]
     Active Substance: ACITRETIN
     Indication: PUSTULAR PSORIASIS
     Route: 065

REACTIONS (4)
  - Off label use [Unknown]
  - Contraindicated product prescribed [Unknown]
  - Abortion induced [Unknown]
  - Maternal exposure during pregnancy [Unknown]
